FAERS Safety Report 24888077 (Version 1)
Quarter: 2025Q1

REPORT INFORMATION
  Report Type: Spontaneous
  Country: GB (occurrence: GB)
  Receive Date: 20250127
  Receipt Date: 20250127
  Transmission Date: 20250408
  Serious: Yes (Other)
  Sender: BOEHRINGER INGELHEIM
  Company Number: None

PATIENT
  Age: 78 Year
  Sex: Male
  Weight: 80 kg

DRUGS (1)
  1. EMPAGLIFLOZIN [Suspect]
     Active Substance: EMPAGLIFLOZIN
     Indication: Diabetes mellitus
     Dates: start: 20241206, end: 20250123

REACTIONS (2)
  - Muscle spasms [Recovering/Resolving]
  - Feeling cold [Recovering/Resolving]

NARRATIVE: CASE EVENT DATE: 20250105
